FAERS Safety Report 10880571 (Version 5)
Quarter: 2015Q3

REPORT INFORMATION
  Report Type: Report from Study
  Country: CL (occurrence: CL)
  Receive Date: 20150303
  Receipt Date: 20150730
  Transmission Date: 20151125
  Serious: Yes (Other)
  Sender: FDA-Public Use
  Company Number: CL-ROCHE-1492851

PATIENT
  Age: 43 Year
  Sex: Female
  Weight: 86.4 kg

DRUGS (2)
  1. XELODA [Suspect]
     Active Substance: CAPECITABINE
     Indication: COLORECTAL CANCER
     Dosage: 14 DAYS PER CYCLE
     Route: 048
     Dates: start: 20141021
  2. OXALIPLATIN. [Suspect]
     Active Substance: OXALIPLATIN
     Indication: COLORECTAL CANCER
     Route: 042
     Dates: start: 20141021

REACTIONS (18)
  - Vomiting [Recovered/Resolved]
  - Nasopharyngitis [Not Recovered/Not Resolved]
  - Syncope [Recovered/Resolved]
  - Pulmonary embolism [Not Recovered/Not Resolved]
  - Vascular calcification [Unknown]
  - Malaise [Recovered/Resolved]
  - Paraesthesia [Not Recovered/Not Resolved]
  - Dehydration [Recovered/Resolved]
  - Headache [Recovering/Resolving]
  - Hypoaesthesia [Not Recovered/Not Resolved]
  - Mesenteric neoplasm [Unknown]
  - Nausea [Recovered/Resolved]
  - Pulmonary thrombosis [Not Recovered/Not Resolved]
  - Vomiting [Recovered/Resolved]
  - Drug dose omission [Unknown]
  - Pulmonary mass [Not Recovered/Not Resolved]
  - Decreased appetite [Not Recovered/Not Resolved]
  - Fatigue [Not Recovered/Not Resolved]

NARRATIVE: CASE EVENT DATE: 20141112
